FAERS Safety Report 8849009 (Version 1)
Quarter: 2012Q4

REPORT INFORMATION
  Report Type: Spontaneous
  Country: US (occurrence: None)
  Receive Date: 20121017
  Receipt Date: 20121017
  Transmission Date: 20130627
  Serious: Yes (Other)
  Sender: FDA-Public Use
  Company Number: None

PATIENT
  Age: 40 Year
  Sex: Female

DRUGS (13)
  1. ASTHMANEFRIN [Suspect]
     Indication: RESPIRATORY DISTRESS
     Dosage: 1 vial PRN 54
     Dates: start: 20120902, end: 20120904
  2. SPIRIVA HANDIHALER [Concomitant]
  3. SYMBICORT 80/4.5  COMBIVENT [Concomitant]
  4. ALBUTEROL/VENTOLIN INHALER [Concomitant]
  5. ASTHMATIC TWISTER INHALER (ASMANEX?) [Concomitant]
  6. TERBUTALINE TABLETS [Concomitant]
  7. LISINOPRIL TABS [Concomitant]
  8. METOPROLOL TARTRATE 25MG TAB [Concomitant]
  9. PAXIL (DEPRESSION) [Concomitant]
  10. OMEPRAZOLE FOR GERD [Concomitant]
  11. VICODIN [Concomitant]
  12. IBUPROFEN [Concomitant]
  13. TYLENOL [Concomitant]

REACTIONS (5)
  - Haemoptysis [None]
  - Chest pain [None]
  - Nausea [None]
  - Dizziness [None]
  - Rash [None]
